FAERS Safety Report 21874101 (Version 1)
Quarter: 2023Q1

REPORT INFORMATION
  Report Type: Spontaneous
  Country: FR (occurrence: FR)
  Receive Date: 20230117
  Receipt Date: 20230117
  Transmission Date: 20230417
  Serious: Yes (Life-Threatening, Hospitalization, Other)
  Sender: FDA-Public Use
  Company Number: None

PATIENT

DRUGS (1)
  1. IBUPROFEN [Suspect]
     Active Substance: IBUPROFEN
     Indication: Sinusitis
     Dosage: 1600 MG, QD (400MG X 4 PER DAY)
     Route: 048
     Dates: start: 20221221, end: 20221226

REACTIONS (3)
  - Central nervous system vasculitis [Not Recovered/Not Resolved]
  - Eye abscess [Not Recovered/Not Resolved]
  - Brain empyema [Not Recovered/Not Resolved]

NARRATIVE: CASE EVENT DATE: 20221226
